FAERS Safety Report 7340211-9 (Version None)
Quarter: 2011Q1

REPORT INFORMATION
  Report Type: 
  Country: None (occurrence: None)
  Receive Date: 20110228
  Receipt Date: 20110216
  Transmission Date: 20110831
  Serious: Yes (Hospitalization)
  Sender: FDA-Public Use
  Company Number: 027693

PATIENT
  Age: 4 Year

DRUGS (1)
  1. KEPPRA [Suspect]

REACTIONS (1)
  - HOSPITALISATION [None]
